FAERS Safety Report 10008680 (Version 1)
Quarter: 2014Q1

REPORT INFORMATION
  Report Type: Spontaneous
  Country: US (occurrence: US)
  Receive Date: 20140312
  Receipt Date: 20140312
  Transmission Date: 20141002
  Serious: No
  Sender: FDA-Public Use
  Company Number: US-INCYTE CORPORATION-2012IN000350

PATIENT
  Sex: Female

DRUGS (4)
  1. JAKAFI [Suspect]
     Indication: MYELOFIBROSIS
     Dosage: 10 MG, BID
     Route: 048
     Dates: start: 201201, end: 201202
  2. HYDREA [Concomitant]
     Dosage: 500 MG, QD
     Route: 048
  3. FOLIC ACID [Concomitant]
     Dosage: 1 MG, QD
     Route: 048
  4. ASPIRIN [Concomitant]
     Dosage: 81 MG, QD

REACTIONS (2)
  - Depression [Recovered/Resolved]
  - Platelet count increased [Unknown]
